FAERS Safety Report 21253362 (Version 1)
Quarter: 2022Q3

REPORT INFORMATION
  Report Type: Spontaneous
  Country: US (occurrence: None)
  Receive Date: 20220824
  Receipt Date: 20220824
  Transmission Date: 20221027
  Serious: Yes (Hospitalization)
  Sender: FDA-Public Use
  Company Number: None

PATIENT
  Age: 72 Year
  Sex: Male
  Weight: 67 kg

DRUGS (1)
  1. MOLNUPIRAVIR [Suspect]
     Active Substance: MOLNUPIRAVIR
     Indication: COVID-19 treatment
     Dosage: 800 MG BID PO
     Route: 048
     Dates: start: 20220813, end: 20220818

REACTIONS (4)
  - Hypertension [None]
  - Syncope [None]
  - Angina pectoris [None]
  - Emphysema [None]

NARRATIVE: CASE EVENT DATE: 20220820
